FAERS Safety Report 23390833 (Version 1)
Quarter: 2024Q1

REPORT INFORMATION
  Report Type: Spontaneous
  Country: US (occurrence: US)
  Receive Date: 20240111
  Receipt Date: 20240111
  Transmission Date: 20240410
  Serious: Yes (Hospitalization)
  Sender: FDA-Public Use
  Company Number: US-SPECGX-T202400400

PATIENT
  Sex: Male
  Weight: 76 kg

DRUGS (4)
  1. FENTANYL TRANSDERMAL SYSTEM [Suspect]
     Active Substance: FENTANYL
     Indication: Sickle cell anaemia
     Dosage: 50 MCG/HR, EVERY 72 HOURS
     Route: 062
     Dates: end: 202303
  2. OXYCODONE [Suspect]
     Active Substance: OXYCODONE
     Indication: Pain
     Dosage: 15 MILLIGRAM, PRN (EVERY 8 HOURS)
     Route: 065
  3. HYDREA [Concomitant]
     Active Substance: HYDROXYUREA
     Indication: Sickle cell anaemia
     Dosage: 500 MILLIGRAM, BID
     Route: 065
  4. AMIODARONE [Concomitant]
     Active Substance: AMIODARONE
     Indication: Stent placement
     Dosage: 75 MILLIGRAM, QD
     Route: 065

REACTIONS (3)
  - Hospitalisation [Unknown]
  - General physical health deterioration [Not Recovered/Not Resolved]
  - Product availability issue [Unknown]

NARRATIVE: CASE EVENT DATE: 20230101
